FAERS Safety Report 24845641 (Version 3)
Quarter: 2025Q1

REPORT INFORMATION
  Report Type: Spontaneous
  Country: JP (occurrence: JP)
  Receive Date: 20250115
  Receipt Date: 20250305
  Transmission Date: 20250409
  Serious: Yes (Hospitalization, Other)
  Sender: BRISTOL-MYERS SQUIBB COMPANY
  Company Number: JP-TAIHO-2025-000149

PATIENT
  Age: 77 Year
  Sex: Male
  Weight: 41 kg

DRUGS (4)
  1. ABRAXANE [Suspect]
     Active Substance: PACLITAXEL
     Indication: Non-small cell lung cancer metastatic
     Dosage: ON DAYS 1, 8, AND 15 OF EACH 21-DAY CYCLE; 7 DOSING DAYS; 3 CYCLES
     Route: 041
     Dates: start: 20230810, end: 20230922
  2. CARBOPLATIN [Suspect]
     Active Substance: CARBOPLATIN
     Indication: Non-small cell lung cancer metastatic
     Dosage: ON DAYS 1, 8, AND 15 OF EACH 21-DAY CYCLE; 7 DOSING DAYS; 3 CYCLES
     Route: 041
     Dates: start: 20230810, end: 20230922
  3. PEMBROLIZUMAB [Suspect]
     Active Substance: PEMBROLIZUMAB
     Indication: Non-small cell lung cancer metastatic
     Dosage: ON DAYS 1, 8, AND 15 OF EACH 21-DAY CYCLE; 7 DOSING DAYS; 3 CYCLES
     Route: 041
     Dates: start: 20230810, end: 20230922
  4. MIYA-BM [Concomitant]
     Active Substance: CLOSTRIDIUM BUTYRICUM SPORES STRAIN M-55
     Indication: Diarrhoea
     Route: 048
     Dates: start: 20230720, end: 20231026

REACTIONS (7)
  - Renal tubular disorder [Recovering/Resolving]
  - Urinary tract infection [Unknown]
  - Myelosuppression [Unknown]
  - Chronic obstructive pulmonary disease [Unknown]
  - Insomnia [Unknown]
  - Gastrooesophageal reflux disease [Unknown]
  - Pneumonia aspiration [Unknown]

NARRATIVE: CASE EVENT DATE: 20230101
